FAERS Safety Report 24234782 (Version 1)
Quarter: 2024Q3

REPORT INFORMATION
  Report Type: Spontaneous
  Country: NL (occurrence: NL)
  Receive Date: 20240821
  Receipt Date: 20240821
  Transmission Date: 20241016
  Serious: Yes (Other)
  Sender: MYLAN
  Company Number: NL-ALG-BCL-20230609

PATIENT
  Age: 9 Year
  Sex: Male

DRUGS (12)
  1. POLYETHYLENE GLYCOL 3350\POTASSIUM CHLORIDE\SODIUM BICARBONATE\SODIUM [Suspect]
     Active Substance: POLYETHYLENE GLYCOL 3350\POTASSIUM CHLORIDE\SODIUM BICARBONATE\SODIUM CHLORIDE
     Indication: Constipation
     Dosage: 10 - 20 G
     Route: 048
     Dates: start: 20230320
  2. GRANISETRON [Suspect]
     Active Substance: GRANISETRON
     Indication: Nausea
     Dosage: 2 MG AS NEEDED (IF NECESSARY)
     Route: 048
     Dates: start: 20230508
  3. ALBUTEROL [Suspect]
     Active Substance: ALBUTEROL
     Indication: Asthma
     Dosage: AS NEEDED (1 - 4 DOSIS, 8X/DAY, IF NECESSARY)
     Route: 055
  4. DESLORATADINE [Suspect]
     Active Substance: DESLORATADINE
     Indication: Asthma
     Dosage: 2.5 MG AS NEEDED (IF NECESSARY),
     Route: 048
     Dates: start: 20230320
  5. ARIPIPRAZOLE [Suspect]
     Active Substance: ARIPIPRAZOLE
     Indication: Autism spectrum disorder
     Dosage: 2.5 MILLIGRAM
     Route: 048
     Dates: start: 20230331
  6. FLUTICASONE [Suspect]
     Active Substance: FLUTICASONE
     Indication: Asthma
     Dosage: 1 DOSAGE FORM
     Route: 045
     Dates: start: 20230320
  7. CRIZOTINIB [Suspect]
     Active Substance: CRIZOTINIB
     Indication: Neoplasm malignant
     Dosage: 220 MILLIGRAM/SQ. METER, BID (440 MILLIGRAM/SQ. METER, QD)
     Route: 048
     Dates: start: 20230211, end: 20230523
  8. BECLOMETHASONE DIPROPIONATE [Suspect]
     Active Substance: BECLOMETHASONE DIPROPIONATE
     Indication: Asthma
     Dosage: 2 DOSAGE FORM, BID
     Route: 055
     Dates: start: 20230320
  9. CHOLECALCIFEROL [Suspect]
     Active Substance: CHOLECALCIFEROL
     Indication: Prophylaxis
     Dosage: 400 INTERNATIONAL UNIT
     Route: 048
     Dates: start: 20230320
  10. MELATONIN [Suspect]
     Active Substance: MELATONIN
     Indication: Autism spectrum disorder
     Dosage: 0.5 MILLIGRAM
     Route: 048
     Dates: start: 20230320
  11. METOCLOPRAMIDE [Suspect]
     Active Substance: METOCLOPRAMIDE
     Indication: Nausea
     Dosage: 12 MG AS NEEDED (IF NECESSARY)
     Route: 048
  12. KLYSMA SORBIT [Concomitant]
     Indication: Constipation
     Dosage: UNK
     Route: 054
     Dates: start: 20230327

REACTIONS (6)
  - Sinus bradycardia [Not Recovered/Not Resolved]
  - Cyanosis [Unknown]
  - Electrocardiogram abnormal [Unknown]
  - Heart rate decreased [Unknown]
  - Constipation [Unknown]
  - Nausea [Unknown]

NARRATIVE: CASE EVENT DATE: 20230522
